FAERS Safety Report 16359628 (Version 2)
Quarter: 2019Q2

REPORT INFORMATION
  Report Type: Spontaneous
  Country: JP (occurrence: JP)
  Receive Date: 20190528
  Receipt Date: 20190619
  Transmission Date: 20190711
  Serious: Yes (Other)
  Sender: FDA-Public Use
  Company Number: JP-TEVA-2019-JP-003055J

PATIENT
  Age: 38 Year
  Sex: Female

DRUGS (5)
  1. DIAZEPAM INJECTION 5MG ^TAIYO^ [Suspect]
     Active Substance: DIAZEPAM
     Indication: SEDATION
     Dosage: 5 MILLIGRAM DAILY;
     Route: 040
     Dates: start: 20190425, end: 20190425
  2. COLONEL [Concomitant]
     Active Substance: CALCIUM POLYCARBOPHIL
     Dosage: 9 DOSAGE FORMS DAILY;
     Route: 065
  3. LIALDA [Concomitant]
     Active Substance: MESALAMINE
     Dosage: 2 DOSAGE FORMS DAILY;
     Route: 065
  4. CEREKINON [Concomitant]
     Active Substance: TRIMEBUTINE
     Dosage: 9 DOSAGE FORMS DAILY;
     Route: 065
  5. IRRIBOW [Concomitant]
     Active Substance: RAMOSETRON HYDROCHLORIDE
     Dosage: .5 DOSAGE FORMS DAILY;
     Route: 065

REACTIONS (6)
  - Feeling hot [Recovered/Resolved]
  - Pain [Recovered/Resolved]
  - Tenderness [Recovered/Resolved]
  - Thrombophlebitis [Not Recovered/Not Resolved]
  - Vascular pain [Recovered/Resolved]
  - Vasculitis [Unknown]

NARRATIVE: CASE EVENT DATE: 20190425
